FAERS Safety Report 4286067-2 (Version None)
Quarter: 2004Q1

REPORT INFORMATION
  Report Type: 
  Country: None (occurrence: None)
  Receive Date: 20040120
  Receipt Date: 20021205
  Transmission Date: 20041129
  Serious: Yes (Life-Threatening, Hospitalization, Other)
  Sender: FDA-Public Use
  Company Number: A03200201372

PATIENT
  Age: 51 Year
  Sex: Male
  Weight: 95.2554 kg

DRUGS (11)
  1. PLAVIX [Suspect]
     Indication: MYOCARDIAL INFARCTION
     Dosage: 75 MG QD - ORAL
     Route: 048
  2. ACETYLSALICYLIC ACID SRT [Concomitant]
  3. VALPROATE SEMISODIUM [Concomitant]
  4. VALSARTAN [Concomitant]
  5. FLUVASTATIN SODIUM [Concomitant]
  6. ATORVASTATIN [Concomitant]
  7. NICOTINE [Concomitant]
  8. GLYCERYL TRINITRATE [Concomitant]
  9. NEFAZODONE HCL [Concomitant]
  10. METOPROLOL SUCCINATE [Concomitant]
  11. LANSOPRAZOLE [Concomitant]

REACTIONS (4)
  - ACUTE MYOCARDIAL INFARCTION [None]
  - CORONARY ARTERY OCCLUSION [None]
  - DRUG INEFFECTIVE [None]
  - RASH [None]
